FAERS Safety Report 15531720 (Version 1)
Quarter: 2018Q4

REPORT INFORMATION
  Report Type: Spontaneous
  Country: US (occurrence: US)
  Receive Date: 20181019
  Receipt Date: 20181019
  Transmission Date: 20190205
  Serious: Yes (Other)
  Sender: FDA-Public Use
  Company Number: US-ABBVIE-18P-163-2520172-00

PATIENT
  Age: 65 Year
  Sex: Female

DRUGS (3)
  1. PREDNISOLONE EYE DROP [Concomitant]
     Indication: UVEITIS
     Dosage: EYE DROP
  2. SYNTHROID [Suspect]
     Active Substance: LEVOTHYROXINE SODIUM
     Dosage: ONE TABLET EVERY OTHER DAY ALTERNATING WITH 75 MCG SYNTHROID
     Route: 048
     Dates: start: 1997
  3. SYNTHROID [Suspect]
     Active Substance: LEVOTHYROXINE SODIUM
     Indication: GOITRE
     Dosage: ONE TABLET EVERY OTHER DAY ALTERNATING WITH  50 MCG TABLET.
     Route: 048
     Dates: start: 1997

REACTIONS (11)
  - Parathyroid disorder [Recovered/Resolved]
  - Arthralgia [Recovering/Resolving]
  - Osteopenia [Recovered/Resolved]
  - Bone density decreased [Not Recovered/Not Resolved]
  - Road traffic accident [Recovering/Resolving]
  - Cataract [Recovered/Resolved]
  - Blood calcium increased [Recovered/Resolved]
  - Pubis fracture [Recovering/Resolving]
  - Gait disturbance [Recovering/Resolving]
  - Glaucoma [Recovered/Resolved]
  - Osteopenia [Not Recovered/Not Resolved]

NARRATIVE: CASE EVENT DATE: 2010
